FAERS Safety Report 24356409 (Version 1)
Quarter: 2024Q3

REPORT INFORMATION
  Report Type: Report from Study
  Country: US (occurrence: US)
  Receive Date: 20240924
  Receipt Date: 20240924
  Transmission Date: 20241016
  Serious: Yes (Other)
  Sender: UCB
  Company Number: US-UCBSA-2024030790

PATIENT
  Age: 11 Year
  Sex: Female
  Weight: 42.7 kg

DRUGS (6)
  1. FINTEPLA [Suspect]
     Active Substance: FENFLURAMINE
     Indication: Severe myoclonic epilepsy of infancy
     Dosage: 3.9 MILLILITER, 2X/DAY (BID)
     Dates: start: 20240606
  2. FINTEPLA [Suspect]
     Active Substance: FENFLURAMINE
     Dosage: 3.0 MILLILITER
  3. FINTEPLA [Suspect]
     Active Substance: FENFLURAMINE
     Dosage: 3.9 MILLILITER, 2X/DAY (BID)
  4. KEPPRA [Suspect]
     Active Substance: LEVETIRACETAM
     Indication: Seizure
     Dosage: 750 MILLIGRAM, 2X/DAY (BID)
     Route: 048
  5. CLOBAZAM [Concomitant]
     Active Substance: CLOBAZAM
     Indication: Seizure
     Dosage: 10 MILLIGRAM QAM 15 MILLIGRAM QHS
     Route: 048
  6. DIACOMIT [Concomitant]
     Active Substance: STIRIPENTOL
     Indication: Seizure
     Dosage: 1000 MILLIGRAM, 2X/DAY (BID)
     Route: 048

REACTIONS (9)
  - Seizure [Recovering/Resolving]
  - Poor quality sleep [Not Recovered/Not Resolved]
  - Positive airway pressure therapy [Not Recovered/Not Resolved]
  - Basophil count increased [Unknown]
  - Blood creatinine decreased [Unknown]
  - Blood urea decreased [Unknown]
  - Lymphocyte count decreased [Unknown]
  - Neutrophil count decreased [Unknown]
  - White blood cell count decreased [Unknown]

NARRATIVE: CASE EVENT DATE: 20240614
